FAERS Safety Report 20641024 (Version 1)
Quarter: 2022Q1

REPORT INFORMATION
  Report Type: Spontaneous
  Country: IT (occurrence: IT)
  Receive Date: 20220327
  Receipt Date: 20220327
  Transmission Date: 20220423
  Serious: Yes (Other)
  Sender: FDA-Public Use
  Company Number: IT-009507513-2201ITA007849

PATIENT
  Age: 64 Year
  Sex: Male

DRUGS (3)
  1. ZERBAXA [Suspect]
     Active Substance: CEFTOLOZANE SULFATE\TAZOBACTAM SODIUM
     Indication: Infectious pleural effusion
     Dosage: 3 GRAM, TID
  2. AMIKACIN [Suspect]
     Active Substance: AMIKACIN
     Indication: Infectious pleural effusion
     Dosage: 1 GRAM, QD
     Dates: start: 2020
  3. GENTAMICIN [Suspect]
     Active Substance: GENTAMICIN
     Indication: Infectious pleural effusion
     Dosage: 320 MILLIGRAM, QD

REACTIONS (2)
  - Pathogen resistance [Unknown]
  - Off label use [Unknown]

NARRATIVE: CASE EVENT DATE: 20200101
